FAERS Safety Report 9055614 (Version 4)
Quarter: 2014Q3

REPORT INFORMATION
  Report Type: Spontaneous
  Country: US (occurrence: US)
  Receive Date: 20130206
  Receipt Date: 20140728
  Transmission Date: 20150326
  Serious: Yes (Other)
  Sender: FDA-Public Use
  Company Number: US-009507513-1301USA013368

PATIENT
  Sex: Male

DRUGS (3)
  1. CLARITIN [Suspect]
     Active Substance: LORATADINE
     Indication: RHINORRHOEA
  2. CLARITIN [Suspect]
     Active Substance: LORATADINE
     Indication: OROPHARYNGEAL PAIN
     Dosage: UNK, UNKNOWN
     Route: 048
     Dates: start: 20130122
  3. CLARITIN [Suspect]
     Active Substance: LORATADINE
     Indication: MALAISE

REACTIONS (3)
  - Deafness [Not Recovered/Not Resolved]
  - Sinus congestion [Unknown]
  - Influenza [Unknown]

NARRATIVE: CASE EVENT DATE: 20130122
